FAERS Safety Report 8379485-4 (Version None)
Quarter: 2012Q1

REPORT INFORMATION
  Report Type: 
  Country: None (occurrence: None)
  Receive Date: 20120323
  Receipt Date: 20110831
  Transmission Date: 20120608
  Serious: Yes (Hospitalization, Other)
  Sender: FDA-Public Use
  Company Number: 163-21880-11031017

PATIENT
  Age: 60 Year
  Sex: Male
  Weight: 88.4514 kg

DRUGS (31)
  1. VYTORIN (INEGY) (TABLETS) [Concomitant]
  2. IMMUNE GLOBULIN NOS [Concomitant]
  3. ACYCLOVIR [Concomitant]
  4. LEVAQUIN [Concomitant]
  5. COUMADIN (WARFARIN SODIUM) (2 MILLIGRAM, TABLETS) [Concomitant]
  6. NITROQUICK (GLYCERYL TRINITRATE) (TABLETS) [Concomitant]
  7. BACTRIM [Concomitant]
  8. PACKED RED BLOOD CELLS (UNKNOWN) [Concomitant]
  9. SULFAMETHAZONE (TABLETS) [Concomitant]
  10. ATENOLOL [Concomitant]
  11. AMBIEN CR (ZOLPIDEM TARTRATE) (12.5 MILLIGRAM, CAPSULES) [Concomitant]
  12. XALATAN (LATANOPROST) (SOLUTION) [Concomitant]
  13. MEDROL (METHYLPREDNISOLONE) (UNKNOWN) [Concomitant]
  14. CIPRO [Concomitant]
  15. VORICONAZOLE [Concomitant]
  16. REVLIMID [Suspect]
     Indication: CHRONIC LYMPHOCYTIC LEUKAEMIA
     Dosage: 10 MG, 1 IN 1 D, PO 5 MG, 1 IN 1 D, PO 10 MG, 1 IN 1 D, PO 5 MG, 1 IN 1 D, PO
     Route: 048
     Dates: start: 20090918, end: 20090101
  17. REVLIMID [Suspect]
     Indication: CHRONIC LYMPHOCYTIC LEUKAEMIA
     Dosage: 10 MG, 1 IN 1 D, PO 5 MG, 1 IN 1 D, PO 10 MG, 1 IN 1 D, PO 5 MG, 1 IN 1 D, PO
     Route: 048
     Dates: start: 20091001, end: 20090101
  18. REVLIMID [Suspect]
     Indication: CHRONIC LYMPHOCYTIC LEUKAEMIA
     Dosage: 10 MG, 1 IN 1 D, PO 5 MG, 1 IN 1 D, PO 10 MG, 1 IN 1 D, PO 5 MG, 1 IN 1 D, PO
     Route: 048
     Dates: start: 20091201
  19. REVLIMID [Suspect]
     Indication: CHRONIC LYMPHOCYTIC LEUKAEMIA
     Dosage: 10 MG, 1 IN 1 D, PO 5 MG, 1 IN 1 D, PO 10 MG, 1 IN 1 D, PO 5 MG, 1 IN 1 D, PO
     Route: 048
     Dates: start: 20110210, end: 20110311
  20. ROBITUSSIN A-C (ROBITUSSIN A-C /OLD FORM/) (SYRUP) [Concomitant]
  21. MULTIVITAMINS (MULTIVITAMINS) (TABLETS) [Concomitant]
  22. OMEGA 3 (FISH OIL) (1000 MILLIGRAM, CAPSULES) [Concomitant]
  23. PENICILLIN (PENICILLIN NOS) (UNKNOWN) [Concomitant]
  24. FLUIDS (I.V. SOLUTIONS) (UNKNOWN) [Concomitant]
  25. LORAZEPAM [Concomitant]
  26. VANCOMYCIN [Concomitant]
  27. ZOSYN [Concomitant]
  28. PREDNISONE [Concomitant]
  29. PLATELETS (PLATELETS) (UNKNOWN) [Concomitant]
  30. FROZEN PLASMA (UNKNOWN) [Concomitant]
  31. TYLENOL (PARACETAMOL) (UNKNOWN) [Concomitant]

REACTIONS (10)
  - SEPSIS [None]
  - RENAL FAILURE ACUTE [None]
  - PANCYTOPENIA [None]
  - DIARRHOEA [None]
  - DISEASE PROGRESSION [None]
  - DYSPNOEA [None]
  - PNEUMONITIS [None]
  - PNEUMONIA [None]
  - COUGH [None]
  - CHRONIC LYMPHOCYTIC LEUKAEMIA [None]
